FAERS Safety Report 4828575-9 (Version None)
Quarter: 2005Q4

REPORT INFORMATION
  Report Type: 
  Country: None (occurrence: None)
  Receive Date: 20051115
  Receipt Date: 20051102
  Transmission Date: 20060501
  Serious: Yes (Other)
  Sender: FDA-Public Use
  Company Number: PHBS2005KW16179

PATIENT
  Age: 57 Year
  Sex: Male

DRUGS (3)
  1. CYCLOSPORINE [Suspect]
     Indication: RENAL TRANSPLANT
     Route: 065
  2. PREDNISOLONE [Concomitant]
     Indication: RENAL TRANSPLANT
  3. CELLCEPT [Suspect]
     Indication: RENAL TRANSPLANT

REACTIONS (14)
  - BALANITIS CANDIDA [None]
  - BLADDER CATHETERISATION [None]
  - CYSTOSTOMY [None]
  - EXOPHTHALMOS [None]
  - HEADACHE [None]
  - HEPATIC FUNCTION ABNORMAL [None]
  - HEPATOTOXICITY [None]
  - OCULAR HYPERAEMIA [None]
  - PENILE ABSCESS [None]
  - RENAL IMPAIRMENT [None]
  - SINUSITIS ASPERGILLUS [None]
  - SURGERY [None]
  - URETHRAL REPAIR [None]
  - URINARY RETENTION [None]
